FAERS Safety Report 9736584 (Version 1)
Quarter: 2013Q4

REPORT INFORMATION
  Report Type: Spontaneous
  Country: US (occurrence: US)
  Receive Date: 20131206
  Receipt Date: 20131206
  Transmission Date: 20140711
  Serious: No
  Sender: FDA-Public Use
  Company Number: US-BIOGENIDEC-2013BI098136

PATIENT
  Sex: Female

DRUGS (2)
  1. TECFIDERA [Suspect]
     Indication: MULTIPLE SCLEROSIS
  2. AVONEX [Concomitant]
     Indication: MULTIPLE SCLEROSIS
     Route: 030
     Dates: start: 19991201

REACTIONS (6)
  - Dizziness [Unknown]
  - Sensation of heaviness [Unknown]
  - Memory impairment [Recovered/Resolved]
  - Hypoaesthesia [Recovered/Resolved]
  - Drug intolerance [Unknown]
  - Multiple sclerosis relapse [Unknown]
